FAERS Safety Report 11326427 (Version 1)
Quarter: 2015Q3

REPORT INFORMATION
  Report Type: Report from Study
  Country: US (occurrence: US)
  Receive Date: 20150731
  Receipt Date: 20150731
  Transmission Date: 20151125
  Serious: Yes (Other)
  Sender: FDA-Public Use
  Company Number: US-BAXALTA-2015BAX031417

PATIENT
  Sex: Female

DRUGS (2)
  1. HUMAN NORMAL IMMUNOGLOBULIN; LIQUID [Suspect]
     Active Substance: HUMAN IMMUNOGLOBULIN G
     Dosage: UNK, 1X A WEEK
     Route: 058
     Dates: start: 201506
  2. HUMAN NORMAL IMMUNOGLOBULIN; LIQUID [Suspect]
     Active Substance: HUMAN IMMUNOGLOBULIN G
     Indication: PRIMARY IMMUNODEFICIENCY SYNDROME
     Dosage: 8 G, 4X A MONTH
     Route: 058

REACTIONS (6)
  - Cough [Unknown]
  - Pneumonia [Unknown]
  - Drug dose omission [Unknown]
  - Ear infection [Recovering/Resolving]
  - Malaise [Unknown]
  - Candida infection [Recovering/Resolving]
